FAERS Safety Report 4875981-2 (Version None)
Quarter: 2005Q4

REPORT INFORMATION
  Report Type: 
  Country: None (occurrence: None)
  Receive Date: 20051206
  Receipt Date: 20050906
  Transmission Date: 20060501
  Serious: No
  Sender: FDA-Public Use
  Company Number: IND-AE-05-SAN-058

PATIENT
  Sex: Male

DRUGS (1)
  1. SANCTURA [Suspect]
     Indication: HYPERTONIC BLADDER
     Dosage: 20 MG - QD - ORAL
     Route: 048
     Dates: start: 20050823, end: 20050901

REACTIONS (3)
  - DYSPHAGIA [None]
  - FLATULENCE [None]
  - VOMITING [None]
